FAERS Safety Report 15885089 (Version 1)
Quarter: 2019Q1

REPORT INFORMATION
  Report Type: Spontaneous
  Country: US (occurrence: US)
  Receive Date: 20190129
  Receipt Date: 20190129
  Transmission Date: 20190417
  Serious: Yes (Other)
  Sender: FDA-Public Use
  Company Number: US-ALLERGAN-1903554US

PATIENT
  Age: 29 Year
  Sex: Female

DRUGS (3)
  1. ZOLOFT [Concomitant]
     Active Substance: SERTRALINE HYDROCHLORIDE
     Indication: DEPRESSION
     Route: 048
  2. OTHER SSRI^S [Concomitant]
     Indication: DEPRESSION
     Route: 048
  3. CELEXA [Suspect]
     Active Substance: CITALOPRAM HYDROBROMIDE
     Indication: DEPRESSION
     Dosage: 20 MG, QD
     Route: 048
     Dates: start: 201501

REACTIONS (7)
  - Suicidal ideation [Not Recovered/Not Resolved]
  - Product dose omission [Unknown]
  - Impaired work ability [Unknown]
  - Abortion induced [Unknown]
  - Indifference [Not Recovered/Not Resolved]
  - Pregnancy [Unknown]
  - Emotional distress [Not Recovered/Not Resolved]

NARRATIVE: CASE EVENT DATE: 2015
